FAERS Safety Report 4303975-4 (Version None)
Quarter: 2004Q1

REPORT INFORMATION
  Report Type: 
  Country: None (occurrence: None)
  Receive Date: 20040223
  Receipt Date: 20031119
  Transmission Date: 20041129
  Serious: No
  Sender: FDA-Public Use
  Company Number: PHEH2003US10648

PATIENT
  Age: 52 Year
  Sex: Female

DRUGS (13)
  1. ZELNORM [Suspect]
     Indication: IRRITABLE BOWEL SYNDROME
     Dosage: 6 MG, BID, ORAL
     Route: 048
     Dates: start: 20031110, end: 20031117
  2. ZANTAC [Concomitant]
  3. PRENATAL VITAMINS (RETINOL, VITAMIN B NOS, VITAMIN D NOS) [Concomitant]
  4. ESTRACE [Concomitant]
  5. SKELAXIN [Concomitant]
  6. ALLEGRA [Concomitant]
  7. SINGULAIR ^DIECKMANN^ (MONTELKAST SODIUM) [Concomitant]
  8. RINOCORT (BECLOMETASOE DIPROPIONATE) [Concomitant]
  9. NEURONTIN [Concomitant]
  10. PAXIL [Concomitant]
  11. WELLBUTRIN SR [Concomitant]
  12. CLONAZEPAM [Concomitant]
  13. GUIIFENESIN [Concomitant]

REACTIONS (1)
  - CHEST PAIN [None]
